FAERS Safety Report 15197513 (Version 1)
Quarter: 2018Q3

REPORT INFORMATION
  Report Type: Spontaneous
  Country: US (occurrence: US)
  Receive Date: 20180725
  Receipt Date: 20180725
  Transmission Date: 20181010
  Serious: No
  Sender: FDA-Public Use
  Company Number: US-ABBVIE-18P-163-2281862-00

PATIENT
  Age: 77 Year
  Sex: Female
  Weight: 63.56 kg

DRUGS (5)
  1. LEVOTHYROXINE. [Suspect]
     Active Substance: LEVOTHYROXINE
     Route: 048
     Dates: start: 20171204, end: 20180218
  2. PRAVASTATIN. [Concomitant]
     Active Substance: PRAVASTATIN
     Indication: BLOOD CHOLESTEROL INCREASED
     Route: 065
  3. LEVOTHYROXINE. [Suspect]
     Active Substance: LEVOTHYROXINE
     Route: 048
     Dates: start: 20180218, end: 20180306
  4. XANAX [Concomitant]
     Active Substance: ALPRAZOLAM
     Indication: ANXIETY
     Dosage: AS NEEDED
     Route: 065
  5. LEVOTHYROXINE. [Suspect]
     Active Substance: LEVOTHYROXINE
     Indication: HYPOTHYROIDISM
     Route: 048
     Dates: end: 20171204

REACTIONS (9)
  - Hypertension [Not Recovered/Not Resolved]
  - Anxiety [Not Recovered/Not Resolved]
  - Influenza [Recovered/Resolved]
  - Influenza [Recovered/Resolved]
  - Nasal congestion [Recovered/Resolved]
  - Hypertension [Recovered/Resolved]
  - Chest pain [Unknown]
  - Blood thyroid stimulating hormone increased [Unknown]
  - Nervousness [Unknown]

NARRATIVE: CASE EVENT DATE: 201711
